FAERS Safety Report 9293695 (Version 2)
Quarter: 2013Q3

REPORT INFORMATION
  Report Type: Spontaneous
  Country: JP (occurrence: JP)
  Receive Date: 20130516
  Receipt Date: 20130828
  Transmission Date: 20140515
  Serious: Yes (Hospitalization)
  Sender: FDA-Public Use
  Company Number: JP-ASTRAZENECA-2012SE81326

PATIENT
  Age: 77 Year
  Sex: Male
  Weight: 55 kg

DRUGS (5)
  1. CRESTOR [Suspect]
     Indication: HYPERLIPIDAEMIA
     Route: 048
     Dates: start: 20090611, end: 20120617
  2. YODEL-S [Concomitant]
     Indication: CONSTIPATION
     Route: 048
  3. MILMAG [Concomitant]
     Indication: CONSTIPATION
     Route: 048
  4. EPATAT [Concomitant]
     Indication: DIABETES MELLITUS
     Route: 048
  5. NOVOLIN N [Concomitant]
     Indication: DIABETES MELLITUS
     Route: 050

REACTIONS (5)
  - Cold sweat [Recovered/Resolved]
  - Feeling abnormal [Recovered/Resolved]
  - Movement disorder [Recovered/Resolved]
  - Rhabdomyolysis [Recovered/Resolved]
  - Fall [Unknown]
